FAERS Safety Report 7133277-2 (Version None)
Quarter: 2010Q4

REPORT INFORMATION
  Report Type: 
  Country: None (occurrence: None)
  Receive Date: 20101202
  Receipt Date: 20101126
  Transmission Date: 20110411
  Serious: Yes (Life-Threatening)
  Sender: FDA-Public Use
  Company Number: CA-PURDUE-USA-2010-0055826

PATIENT
  Sex: Male
  Weight: 92.7 kg

DRUGS (1)
  1. OXY INHALATION POWDER [Suspect]
     Indication: DRUG LEVEL
     Dosage: 40 MG, UNK
     Dates: start: 20101126, end: 20101126

REACTIONS (1)
  - CARDIAC ARREST [None]
